FAERS Safety Report 14364154 (Version 1)
Quarter: 2018Q1

REPORT INFORMATION
  Report Type: Spontaneous
  Country: CN (occurrence: CN)
  Receive Date: 20180108
  Receipt Date: 20180108
  Transmission Date: 20180509
  Serious: Yes (Other)
  Sender: FDA-Public Use
  Company Number: CN-PFIZER INC-2018002838

PATIENT
  Age: 39 Year
  Sex: Female
  Weight: 51 kg

DRUGS (2)
  1. CYCLOPHOSPHAMIDE. [Suspect]
     Active Substance: CYCLOPHOSPHAMIDE
     Indication: BREAST CANCER
     Dosage: 0.8 G, 1X/DAY
     Route: 041
     Dates: start: 20171027, end: 20171027
  2. PHARMORUBICIN [Suspect]
     Active Substance: EPIRUBICIN
     Indication: BREAST CANCER
     Dosage: 110 MG, 1X/DAY
     Route: 041
     Dates: start: 20171027, end: 20171027

REACTIONS (2)
  - White blood cell count decreased [Recovering/Resolving]
  - Fatigue [Unknown]

NARRATIVE: CASE EVENT DATE: 20171103
